FAERS Safety Report 13237108 (Version 1)
Quarter: 2017Q1

REPORT INFORMATION
  Report Type: Spontaneous
  Country: JP (occurrence: JP)
  Receive Date: 20170215
  Receipt Date: 20170215
  Transmission Date: 20170428
  Serious: Yes (Death, Other)
  Sender: FDA-Public Use
  Company Number: JP-CELGENEUS-JPN-2017022286

PATIENT
  Age: 48 Year
  Sex: Male

DRUGS (1)
  1. VIDAZA [Suspect]
     Active Substance: AZACITIDINE
     Indication: MYELODYSPLASTIC SYNDROME
     Dosage: 75 MILLIGRAM/SQ. METER
     Route: 041

REACTIONS (8)
  - Death [Fatal]
  - Chronic graft versus host disease [Unknown]
  - Graft versus host disease in liver [Unknown]
  - Blood alkaline phosphatase increased [Unknown]
  - Myelodysplastic syndrome [Unknown]
  - Alanine aminotransferase increased [Unknown]
  - Aspartate aminotransferase increased [Unknown]
  - Acute graft versus host disease [Unknown]

NARRATIVE: CASE EVENT DATE: 201504
